FAERS Safety Report 7565602-2 (Version None)
Quarter: 2011Q2

REPORT INFORMATION
  Report Type: 
  Country: None (occurrence: None)
  Receive Date: 20110616
  Receipt Date: 20110602
  Transmission Date: 20111010
  Serious: Yes (Hospitalization)
  Sender: FDA-Public Use
  Company Number: MPS1-1000505

PATIENT
  Age: 23 Month
  Sex: Male
  Weight: 10 kg

DRUGS (4)
  1. ALBUTEROL [Concomitant]
  2. KEFLEX [Concomitant]
  3. ALDURAZYME [Suspect]
     Indication: MUCOPOLYSACCHARIDOSIS I
     Dosage: 0.58 MG/KG, QW, INTRAVENOUS; 0.87 MG/KG, QW, INTRAVENOUS
     Route: 042
     Dates: start: 20110517
  4. ALDURAZYME [Suspect]
     Indication: MUCOPOLYSACCHARIDOSIS I
     Dosage: 0.58 MG/KG, QW, INTRAVENOUS; 0.87 MG/KG, QW, INTRAVENOUS
     Route: 042
     Dates: start: 20100330, end: 20110503

REACTIONS (5)
  - URTICARIA [None]
  - RASH ERYTHEMATOUS [None]
  - BREATH SOUNDS ABNORMAL [None]
  - SWELLING FACE [None]
  - PRURITUS [None]
